FAERS Safety Report 7294371-9 (Version None)
Quarter: 2011Q1

REPORT INFORMATION
  Report Type: 
  Country: None (occurrence: None)
  Receive Date: 20110215
  Receipt Date: 20110202
  Transmission Date: 20110831
  Serious: Yes (Other)
  Sender: FDA-Public Use
  Company Number: AR-AMGEN-ARGSP2011007492

PATIENT
  Age: 61 Year
  Sex: Male

DRUGS (2)
  1. ENBREL [Suspect]
     Indication: RHEUMATOID ARTHRITIS
     Dosage: 25 MG, 2X/WEEK
     Route: 065
     Dates: start: 20100701
  2. METHOTREXATE SODIUM [Concomitant]
     Dosage: 15 MG, WEEKLY
     Route: 065
     Dates: start: 20100701

REACTIONS (5)
  - SYNOVIAL CYST [None]
  - ARTHRALGIA [None]
  - CELLULITIS [None]
  - JOINT SWELLING [None]
  - ABSCESS [None]
